FAERS Safety Report 6805392-1 (Version None)
Quarter: 2010Q2

REPORT INFORMATION
  Report Type: 
  Country: None (occurrence: None)
  Receive Date: 20100628
  Receipt Date: 20071113
  Transmission Date: 20101027
  Serious: No
  Sender: FDA-Public Use
  Company Number: US-PFIZER INC-2007096321

PATIENT
  Sex: Male

DRUGS (1)
  1. XAL-EASE [Suspect]

REACTIONS (3)
  - DEVICE MALFUNCTION [None]
  - NO ADVERSE EVENT [None]
  - TREMOR [None]
